FAERS Safety Report 5663844-4 (Version None)
Quarter: 2008Q1

REPORT INFORMATION
  Report Type: 
  Country: None (occurrence: None)
  Receive Date: 20080311
  Receipt Date: 20080229
  Transmission Date: 20080703
  Serious: Yes (Hospitalization)
  Sender: FDA-Public Use
  Company Number: URSO-2007-205 F-UP #2

PATIENT
  Age: 69 Year
  Sex: Male

DRUGS (15)
  1. URSO 250 [Suspect]
     Indication: JAUNDICE
     Dosage: 300 MG ORAL
     Route: 048
     Dates: start: 20040901, end: 20070801
  2. FLUOROURACIL [Suspect]
  3. METHOTREXATE [Suspect]
  4. CEFAMEZIN ALPHA (CEFAZOLIN SODIUM) [Concomitant]
  5. MINOCYCLINE HCL [Concomitant]
  6. DOCETAXEL HYDRATE (DOCETAXEL HYDRATE) [Concomitant]
  7. FURTULON (DOXIFLURIDINE) [Concomitant]
  8. WARFARIN (WARFARIN POTASSIUM) [Concomitant]
  9. ALDACTONE [Concomitant]
  10. DIART (AZOSEMIDE) [Concomitant]
  11. URINORM (BENZBROMARONE) [Concomitant]
  12. MIYA BM (CLSTORIDIUM BUTYRICUM) [Concomitant]
  13. CEREKINON (TRIMEBTUINE MALEATE) [Concomitant]
  14. CHOCOLA A (VITAMIN A) [Concomitant]
  15. JUVELA [Concomitant]

REACTIONS (8)
  - ALVEOLITIS [None]
  - ASTHMA [None]
  - IDIOPATHIC PULMONARY FIBROSIS [None]
  - INTERSTITIAL LUNG DISEASE [None]
  - JAUNDICE CHOLESTATIC [None]
  - LYMPHOCYTE STIMULATION TEST POSITIVE [None]
  - PNEUMONITIS [None]
  - PORTAL VEIN THROMBOSIS [None]
